FAERS Safety Report 4604112-9 (Version None)
Quarter: 2005Q1

REPORT INFORMATION
  Report Type: 
  Country: None (occurrence: None)
  Receive Date: 20050309
  Receipt Date: 20050309
  Transmission Date: 20050727
  Serious: Yes (Hospitalization, Other)
  Sender: FDA-Public Use
  Company Number: None

PATIENT
  Age: 15 Year
  Sex: Male
  Weight: 45 kg

DRUGS (11)
  1. MEGESTROL 20 MG BRISTOL MYERS SQUIBB [Suspect]
     Indication: DECREASED APPETITE
     Dosage: 40 MG BID ORAL
     Route: 048
  2. METOPROLOL [Concomitant]
  3. ISRADIPINE [Concomitant]
  4. NIFEDIPINE [Concomitant]
  5. ISONIAZID [Concomitant]
  6. NEPHROCAPS [Concomitant]
  7. CALCITRIOL [Concomitant]
  8. FERROUS SULFATE TAB [Concomitant]
  9. RENAGEL [Concomitant]
  10. PYRIDOXINE HCL [Concomitant]
  11. PHENYTOIN [Concomitant]

REACTIONS (1)
  - VENA CAVA THROMBOSIS [None]
